FAERS Safety Report 5331515-X (Version None)
Quarter: 2007Q2

REPORT INFORMATION
  Report Type: 
  Country: None (occurrence: None)
  Receive Date: 20070522
  Receipt Date: 20070510
  Transmission Date: 20071010
  Serious: Yes (Hospitalization)
  Sender: FDA-Public Use
  Company Number: KR-PFIZER INC-2007008167

PATIENT
  Sex: Male
  Weight: 46.5 kg

DRUGS (2)
  1. SU-011,248 [Suspect]
     Indication: GASTROINTESTINAL STROMAL TUMOUR
     Route: 048
  2. MAGNESIUM OXIDE [Concomitant]
     Route: 048

REACTIONS (3)
  - ASTHENIA [None]
  - AZOTAEMIA [None]
  - DISSEMINATED INTRAVASCULAR COAGULATION [None]
